FAERS Safety Report 25123323 (Version 1)
Quarter: 2025Q1

REPORT INFORMATION
  Report Type: Spontaneous
  Country: US (occurrence: US)
  Receive Date: 20250326
  Receipt Date: 20250326
  Transmission Date: 20250409
  Serious: No
  Sender: GRIFOLS
  Company Number: US-IGSA-BIG0032038

PATIENT
  Age: 63 Year
  Sex: Female
  Weight: 97.5 kg

DRUGS (24)
  1. PROLASTIN-C LIQUID [Suspect]
     Active Substance: .ALPHA.1-PROTEINASE INHIBITOR HUMAN
     Indication: Alpha-1 antitrypsin deficiency
     Dosage: 5568 MILLIGRAM, Q.WK.
     Route: 042
     Dates: start: 20241202
  2. PREDNISOLONE [Concomitant]
     Active Substance: PREDNISOLONE
  3. EPINEPHRINE [Concomitant]
     Active Substance: EPINEPHRINE
  4. LIDOCAINE 4% MENTHOL 4% [Concomitant]
     Active Substance: LIDOCAINE\MENTHOL
  5. DEXTROSE\SODIUM CHLORIDE [Concomitant]
     Active Substance: DEXTROSE\SODIUM CHLORIDE
  6. AMOXICILLIN [Concomitant]
     Active Substance: AMOXICILLIN
  7. SUCRALFATE KENT [Concomitant]
  8. BETAMETHASONE DIPROPIONATE AUGMENTED [Concomitant]
     Active Substance: BETAMETHASONE DIPROPIONATE
  9. FAMOTIDINE [Concomitant]
     Active Substance: FAMOTIDINE
  10. NICOTINELL [Concomitant]
     Active Substance: NICOTINE
  11. ALBUTEROL\IPRATROPIUM [Concomitant]
     Active Substance: ALBUTEROL\IPRATROPIUM
  12. CYANOCOBALAMIN VIAL [Concomitant]
  13. POLYETHYLENE GLYCOL 3350 [Concomitant]
     Active Substance: POLYETHYLENE GLYCOL 3350
  14. LEVALBUTEROL HYDROCHLORIDE [Concomitant]
     Active Substance: LEVALBUTEROL HYDROCHLORIDE
  15. PREDNISONE ACETATE [Concomitant]
     Active Substance: PREDNISONE ACETATE
  16. FOLIC ACID [Concomitant]
     Active Substance: FOLIC ACID
  17. CALCIPOTRIENE 0,005% AND BETAMETHASONE DIPROPIONATE 0,064% [Concomitant]
  18. ASPIRIN [Concomitant]
     Active Substance: ASPIRIN
  19. CLONAZEPAM [Concomitant]
     Active Substance: CLONAZEPAM
  20. EPIPEN [Concomitant]
     Active Substance: EPINEPHRINE
  21. FERROUS SULFATE\FOLIC ACID [Concomitant]
     Active Substance: FERROUS SULFATE\FOLIC ACID
  22. VITAMIN D3 [Concomitant]
     Active Substance: CHOLECALCIFEROL
  23. NYSTATIN [Concomitant]
     Active Substance: NYSTATIN
  24. OXYGEN [Concomitant]
     Active Substance: OXYGEN

REACTIONS (2)
  - Feeling cold [Unknown]
  - Product administration error [Unknown]

NARRATIVE: CASE EVENT DATE: 20241129
